FAERS Safety Report 17712174 (Version 1)
Quarter: 2020Q2

REPORT INFORMATION
  Report Type: Report from Study
  Country: US (occurrence: US)
  Receive Date: 20200427
  Receipt Date: 20200427
  Transmission Date: 20200714
  Serious: Yes (Life-Threatening, Hospitalization)
  Sender: FDA-Public Use
  Company Number: US-GLAXOSMITHKLINE-US2020GSK062155

PATIENT
  Age: 70 Year
  Sex: Male
  Weight: 78.46 kg

DRUGS (10)
  1. NIRAPARIB [Suspect]
     Active Substance: NIRAPARIB
     Indication: ADENOCARCINOMA
     Dosage: 200 MG, QD
     Route: 048
     Dates: start: 20200324, end: 20200417
  2. NIVOLUMAB [Suspect]
     Active Substance: NIVOLUMAB
     Indication: PANCREATIC CARCINOMA
     Dosage: UNK
     Dates: end: 20200407
  3. SAMSCA [Concomitant]
     Active Substance: TOLVAPTAN
     Dosage: 15 MG, Z (EVERY OTHER DAY)
     Route: 048
  4. NIVOLUMAB [Suspect]
     Active Substance: NIVOLUMAB
     Indication: ADENOCARCINOMA
     Dosage: 240 MG, Z (EVERY 2 WEEKS)
     Route: 042
     Dates: start: 20200324, end: 20200324
  5. LACTULOSE. [Concomitant]
     Active Substance: LACTULOSE
     Dosage: 20GM/30ML, EVERY 2 HOURS, UNTILL HAVE A BM THEN STOP.
     Route: 048
  6. TRAMADOL. [Concomitant]
     Active Substance: TRAMADOL
     Dosage: 50 MG, PRN (1 TABLET AS NEEDED)
     Route: 048
  7. LORAZEPAM. [Concomitant]
     Active Substance: LORAZEPAM
     Dosage: 0.5 MG, PRN  (EVERY 6 HRS AS NEEDED NAUSEA).
     Route: 048
  8. OMEPRAZOLE. [Concomitant]
     Active Substance: OMEPRAZOLE
     Dosage: 40 MG, QD
  9. NIRAPARIB [Suspect]
     Active Substance: NIRAPARIB
     Indication: PANCREATIC CARCINOMA
  10. SENNA [Concomitant]
     Active Substance: SENNA LEAF\SENNOSIDES\SENNOSIDES A AND B
     Dosage: 8.6 MG, QD
     Route: 048

REACTIONS (2)
  - Platelet count decreased [Unknown]
  - Abdominal pain [Unknown]

NARRATIVE: CASE EVENT DATE: 20200402
